FAERS Safety Report 7674278-5 (Version None)
Quarter: 2011Q3

REPORT INFORMATION
  Report Type: 
  Country: None (occurrence: None)
  Receive Date: 20110810
  Receipt Date: 20110727
  Transmission Date: 20111222
  Serious: Yes (Hospitalization)
  Sender: FDA-Public Use
  Company Number: IT-CELGENEUS-083-21880-10021614

PATIENT
  Sex: Male
  Weight: 76 kg

DRUGS (10)
  1. LANSOPRAZOLE [Concomitant]
     Dosage: 30 MILLIGRAM
     Route: 065
  2. NICIZINA [Concomitant]
     Dosage: 300 MILLIGRAM
     Route: 065
  3. PREDNISONE [Concomitant]
     Dosage: 50 MILLIGRAM
     Route: 065
  4. AUGMENTIN '125' [Concomitant]
     Dosage: 2 GRAM
     Route: 065
     Dates: end: 20100212
  5. ZEFFIX [Concomitant]
     Dosage: 100 MILLIGRAM
     Route: 065
  6. REVLIMID [Suspect]
     Dosage: 10 MILLIGRAM
     Route: 048
     Dates: start: 20100125, end: 20100203
  7. ENOXAPARIN [Concomitant]
     Dosage: 4000 IU (INTERNATIONAL UNIT)
     Route: 065
  8. LASIX [Concomitant]
     Dosage: 25 MILLIGRAM
     Route: 065
  9. REVLIMID [Suspect]
     Dosage: 5 MILLIGRAM
     Route: 048
     Dates: start: 20100111
  10. BACTRIM DS [Concomitant]
     Dosage: 960 MILLIGRAM
     Route: 065

REACTIONS (4)
  - PLEURAL FIBROSIS [None]
  - LEUKOCYTOSIS [None]
  - HAEMOLYSIS [None]
  - PYREXIA [None]
